FAERS Safety Report 26010834 (Version 1)
Quarter: 2025Q4

REPORT INFORMATION
  Report Type: Spontaneous
  Country: CH (occurrence: CH)
  Receive Date: 20251107
  Receipt Date: 20251107
  Transmission Date: 20260117
  Serious: Yes (Disabling)
  Sender: FDC LIMITED
  Company Number: CH-FDC-2025CHLIT00454

PATIENT
  Age: 41 Year
  Sex: Male

DRUGS (2)
  1. CIPROFLOXACIN [Suspect]
     Active Substance: CIPROFLOXACIN
     Indication: Product used for unknown indication
     Dosage: TWO 500 MG TABLETS PER DAY
     Route: 065
     Dates: start: 2021
  2. AMOXICILLIN [Concomitant]
     Active Substance: AMOXICILLIN
     Indication: Epstein-Barr virus infection
     Route: 065

REACTIONS (7)
  - Tendon pain [Recovering/Resolving]
  - Small fibre neuropathy [Recovering/Resolving]
  - Extrasystoles [Unknown]
  - Insomnia [Unknown]
  - Pain [Unknown]
  - Tinnitus [Unknown]
  - Livedo reticularis [Unknown]

NARRATIVE: CASE EVENT DATE: 20210101
